FAERS Safety Report 8131349 (Version 3)
Quarter: 2013Q1

REPORT INFORMATION
  Report Type: Spontaneous
  Country: US (occurrence: US)
  Receive Date: 20110912
  Receipt Date: 20130325
  Transmission Date: 20140127
  Serious: Yes (Hospitalization)
  Sender: FDA-Public Use
  Company Number: US-GLAXOSMITHKLINE-A0897055A

PATIENT
  Age: 47 Year
  Sex: Female
  Weight: 94.5 kg

DRUGS (4)
  1. AVANDIA [Suspect]
     Indication: DIABETES MELLITUS
     Dosage: 4MG PER DAY
     Route: 048
     Dates: start: 200102, end: 200211
  2. CELEBREX [Concomitant]
  3. AMARYL [Concomitant]
  4. ZOLOFT [Concomitant]

REACTIONS (2)
  - Angina unstable [Not Recovered/Not Resolved]
  - Coronary artery disease [Unknown]
